FAERS Safety Report 15703997 (Version 2)
Quarter: 2018Q4

REPORT INFORMATION
  Report Type: Report from Study
  Country: US (occurrence: US)
  Receive Date: 20181210
  Receipt Date: 20181224
  Transmission Date: 20190205
  Serious: Yes (Hospitalization)
  Sender: FDA-Public Use
  Company Number: US-BRISTOL-MYERS SQUIBB COMPANY-BMS-2018-106685

PATIENT
  Age: 60 Year
  Sex: Female
  Weight: 50.79 kg

DRUGS (3)
  1. NIVOLUMAB [Suspect]
     Active Substance: NIVOLUMAB
     Indication: SMALL CELL LUNG CANCER RECURRENT
     Dosage: 57 MG, QD
     Route: 042
     Dates: start: 20180911
  2. IPILIMUMAB [Suspect]
     Active Substance: IPILIMUMAB
     Indication: SMALL CELL LUNG CANCER RECURRENT
     Dosage: 170 MG, QD
     Route: 042
     Dates: start: 20180911
  3. PLINABULIN [Suspect]
     Active Substance: PLINABULIN
     Indication: SMALL CELL LUNG CANCER RECURRENT
     Dosage: 31 MG
     Route: 042
     Dates: start: 20180911

REACTIONS (1)
  - Diarrhoea [Recovered/Resolved]

NARRATIVE: CASE EVENT DATE: 20181103
